FAERS Safety Report 8959337 (Version 2)
Quarter: 2013Q3

REPORT INFORMATION
  Report Type: Spontaneous
  Country: US (occurrence: US)
  Receive Date: 20121212
  Receipt Date: 20130913
  Transmission Date: 20140515
  Serious: No
  Sender: FDA-Public Use
  Company Number: US-BIOGENIDEC-2012BI058554

PATIENT
  Age: 59 Year
  Sex: Female

DRUGS (2)
  1. TYSABRI [Suspect]
     Indication: MULTIPLE SCLEROSIS
     Route: 042
     Dates: start: 20100719
  2. REBIF [Concomitant]
     Indication: MULTIPLE SCLEROSIS
     Dates: start: 2001, end: 2010

REACTIONS (8)
  - Pain [Not Recovered/Not Resolved]
  - Arthropathy [Not Recovered/Not Resolved]
  - Central nervous system lesion [Unknown]
  - Arthritis [Not Recovered/Not Resolved]
  - Spinal column stenosis [Not Recovered/Not Resolved]
  - Arthralgia [Not Recovered/Not Resolved]
  - Malaise [Not Recovered/Not Resolved]
  - Asthenia [Recovered/Resolved]
